FAERS Safety Report 10427151 (Version 1)
Quarter: 2014Q3

REPORT INFORMATION
  Report Type: Spontaneous
  Country: US (occurrence: US)
  Receive Date: 20140903
  Receipt Date: 20140903
  Transmission Date: 20150326
  Serious: No
  Sender: FDA-Public Use
  Company Number: US-009507513-1408USA015921

PATIENT
  Age: 20 Year
  Sex: Male

DRUGS (2)
  1. CLARITIN REDITABS [Suspect]
     Active Substance: LORATADINE
     Indication: PRODUCT USED FOR UNKNOWN INDICATION
     Dosage: 10MG, ONCE
     Route: 048
     Dates: start: 20140715
  2. PRIMATENE MIST [Concomitant]
     Active Substance: EPINEPHRINE
     Indication: ASTHMA
     Dosage: UNK, UNKNOWN

REACTIONS (3)
  - Wheezing [Not Recovered/Not Resolved]
  - Nasal discomfort [Not Recovered/Not Resolved]
  - Dyspnoea [Not Recovered/Not Resolved]

NARRATIVE: CASE EVENT DATE: 201407
